FAERS Safety Report 21769506 (Version 1)
Quarter: 2022Q4

REPORT INFORMATION
  Report Type: Spontaneous
  Country: ES (occurrence: ES)
  Receive Date: 20221223
  Receipt Date: 20221223
  Transmission Date: 20230113
  Serious: Yes (Hospitalization)
  Sender: FDA-Public Use
  Company Number: ES-AEMPS-1303720

PATIENT
  Age: 59 Year
  Sex: Male

DRUGS (11)
  1. IRINOTECAN [Suspect]
     Active Substance: IRINOTECAN
     Indication: Pancreatic carcinoma
     Dosage: 129 MILLIGRAM (129.0 MG C/21 DAYS)
     Route: 042
     Dates: start: 20220929
  2. PYRIDOXINE HYDROCHLORIDE [Concomitant]
     Active Substance: PYRIDOXINE HYDROCHLORIDE
     Indication: Iron deficiency anaemia
     Dosage: 300 MILLIGRAM (300.0 MG DE)
     Route: 048
     Dates: start: 20210825
  3. CHOLECALCIFEROL [Concomitant]
     Active Substance: CHOLECALCIFEROL
     Indication: Vitamin D deficiency
     Dosage: 25000 INTERNATIONAL UNIT (25000.0 UI C/30 DIAS)(25000.0 UI C/30 DAYS)
     Route: 048
     Dates: start: 20200930
  4. IBUPROFENO CINFA [Concomitant]
     Indication: Spinal pain
     Dosage: 600 MILLIGRAM, TWO TIMES A DAY (600.0 MG C/12 H)
     Route: 048
     Dates: start: 20220921, end: 20221120
  5. PANCRELIPASE [Concomitant]
     Active Substance: PANCRELIPASE
     Indication: Pancreatic carcinoma
     Dosage: 1.0 CAPS DECOMECE
     Route: 048
     Dates: start: 20221011
  6. Mastical d unidia [Concomitant]
     Indication: Calcium metabolism disorder
     Dosage: 1.0 COMP DECOCE
     Route: 048
     Dates: start: 20221011
  7. OMEPRAZOLE [Concomitant]
     Active Substance: OMEPRAZOLE
     Indication: Pancreatic carcinoma
     Dosage: 40 MILLIGRAM (40.0 MG A-DE)
     Route: 048
     Dates: start: 20200826
  8. OXYCODONE HYDROCHLORIDE [Concomitant]
     Active Substance: OXYCODONE HYDROCHLORIDE
     Indication: Tobacco abuse
     Dosage: 20 MILLIGRAM, FOUR TIMES/DAY (20.0 MG C/6 HORAS)(20.0 MG EVERY 6 HOURS)
     Route: 048
     Dates: start: 20221011
  9. PARACETAMOL CINFA [Concomitant]
     Indication: Tobacco abuse
     Dosage: 1 GRAM (1.0 G DECOCE)
     Route: 048
     Dates: start: 20220704
  10. NALOXONE HYDROCHLORIDE\OXYCODONE HYDROCHLORIDE [Concomitant]
     Active Substance: NALOXONE HYDROCHLORIDE\OXYCODONE HYDROCHLORIDE
     Indication: Tobacco abuse
     Dosage: 5 MILLIGRAM, TWO TIMES A DAY (5.0 MG C/12 H)
     Route: 048
     Dates: start: 20221011
  11. NALOXONE HYDROCHLORIDE\OXYCODONE HYDROCHLORIDE [Concomitant]
     Active Substance: NALOXONE HYDROCHLORIDE\OXYCODONE HYDROCHLORIDE
     Indication: Iron deficiency anaemia
     Dosage: 40 MILLIGRAM, TWO TIMES A DAY (40.0 MG C/12 H)
     Route: 048
     Dates: start: 20220912

REACTIONS (2)
  - Hypocalcaemia [Recovered/Resolved]
  - Hypophosphataemia [Recovered/Resolved]

NARRATIVE: CASE EVENT DATE: 20221121
